FAERS Safety Report 4906017-2 (Version None)
Quarter: 2006Q1

REPORT INFORMATION
  Report Type: 
  Country: None (occurrence: None)
  Receive Date: 20060206
  Receipt Date: 20060123
  Transmission Date: 20060701
  Serious: Yes (Death, Other)
  Sender: FDA-Public Use
  Company Number: 24055

PATIENT
  Age: 77 Year
  Sex: Male

DRUGS (1)
  1. DACARBAZINE [Suspect]
     Indication: METASTATIC MALIGNANT MELANOMA
     Dates: start: 20050822

REACTIONS (1)
  - DEATH [None]
